FAERS Safety Report 18292546 (Version 2)
Quarter: 2020Q4

REPORT INFORMATION
  Report Type: Report from Study
  Country: None (occurrence: US)
  Receive Date: 20200922
  Receipt Date: 20201027
  Transmission Date: 20210113
  Serious: Yes (Hospitalization, Other)
  Sender: FDA-Public Use
  Company Number: US-ABBVIE-20K-163-3573852-00

PATIENT
  Age: 56 Year
  Sex: Male

DRUGS (5)
  1. PROTONIX OMEPRAZOLE [Concomitant]
     Indication: GASTROOESOPHAGEAL REFLUX DISEASE
  2. PENICILLIN NOS [Concomitant]
     Active Substance: PENICILLIN
     Indication: PRODUCT USED FOR UNKNOWN INDICATION
  3. HUMIRA [Suspect]
     Active Substance: ADALIMUMAB
     Indication: COLITIS ULCERATIVE
     Dosage: CITRATE FREE
     Route: 058
     Dates: start: 2019
  4. HUMIRA [Suspect]
     Active Substance: ADALIMUMAB
     Indication: CROHN^S DISEASE
  5. ELIQUIS [Concomitant]
     Active Substance: APIXABAN
     Indication: ANTICOAGULANT THERAPY

REACTIONS (6)
  - Deep vein thrombosis [Recovering/Resolving]
  - Pericardial haemorrhage [Recovered/Resolved]
  - Post procedural stroke [Recovering/Resolving]
  - Cardiac operation [Recovering/Resolving]
  - Gastrooesophageal reflux disease [Recovered/Resolved]
  - Surgery [Recovering/Resolving]

NARRATIVE: CASE EVENT DATE: 2020
